FAERS Safety Report 4518204-6 (Version None)
Quarter: 2004Q4

REPORT INFORMATION
  Report Type: 
  Country: None (occurrence: None)
  Receive Date: 20041130
  Receipt Date: 20041112
  Transmission Date: 20050328
  Serious: Yes (Hospitalization, Other)
  Sender: FDA-Public Use
  Company Number: US_0411108089

PATIENT
  Age: 83 Year
  Sex: Female

DRUGS (13)
  1. FORTEO [Suspect]
     Indication: OSTEOPOROSIS
     Dates: start: 20040901
  2. INFLUENZA VACCINE [Concomitant]
  3. ZOCOR (SIMVASTATIN RATIOPHARM) [Concomitant]
  4. ACCUPRIL [Concomitant]
  5. NORVASC [Concomitant]
  6. MOBIC [Concomitant]
  7. VICODIN [Concomitant]
  8. METOPROLOL [Concomitant]
  9. TERAZOSIN HCL [Concomitant]
  10. PROTONIX [Concomitant]
  11. PEPCID [Concomitant]
  12. CALCIUM [Concomitant]
  13. PRAVACHOL [Concomitant]

REACTIONS (6)
  - BLOOD GLUCOSE DECREASED [None]
  - HYPERSOMNIA [None]
  - LOSS OF CONSCIOUSNESS [None]
  - MARKEDLY REDUCED DIETARY INTAKE [None]
  - OXYGEN SATURATION DECREASED [None]
  - PHARMACEUTICAL PRODUCT COMPLAINT [None]
